FAERS Safety Report 6030790-6 (Version None)
Quarter: 2009Q1

REPORT INFORMATION
  Report Type: 
  Country: None (occurrence: None)
  Receive Date: 20090107
  Receipt Date: 20081230
  Transmission Date: 20090719
  Serious: Yes (Other)
  Sender: FDA-Public Use
  Company Number: PHHY2008MX33606

PATIENT
  Sex: Male

DRUGS (3)
  1. DIOVAN HCT [Suspect]
     Indication: HYPERTENSION
     Dosage: 1 TABLET (160/12.5 MG) PER DAY
     Dates: start: 20060701, end: 20081009
  2. PLAVIX [Concomitant]
     Dosage: 1 TABLET DAIILY
  3. TAFIL [Concomitant]
     Dosage: 1 TABLET DAILY

REACTIONS (2)
  - INFLAMMATION [None]
  - MYOCARDIAL INFARCTION [None]
